FAERS Safety Report 6059160-1 (Version None)
Quarter: 2009Q1

REPORT INFORMATION
  Report Type: 
  Country: None (occurrence: None)
  Receive Date: 20090130
  Receipt Date: 20090120
  Transmission Date: 20090719
  Serious: Yes (Other)
  Sender: FDA-Public Use
  Company Number: US-PFIZER INC-2008077539

PATIENT
  Sex: Male
  Weight: 97.506 kg

DRUGS (9)
  1. LYRICA [Suspect]
     Indication: DIABETIC NEUROPATHY
     Dosage: 50 MG, 2X/DAY
     Route: 048
     Dates: start: 20070101
  2. INSULIN [Concomitant]
  3. PROPOXYPHENE HYDROCHLORIDE [Concomitant]
     Dosage: UNK
  4. TEMAZEPAM [Concomitant]
     Dosage: UNK
  5. DEMADEX [Concomitant]
     Dosage: UNK
  6. METOPROLOL [Concomitant]
     Dosage: UNK
  7. ZOCOR [Concomitant]
     Dosage: UNK
  8. PRINIVIL [Concomitant]
     Dosage: UNK
  9. PROTONIX [Concomitant]
     Dosage: UNK

REACTIONS (6)
  - ATAXIA [None]
  - BALANCE DISORDER [None]
  - CEREBELLAR ISCHAEMIA [None]
  - DIZZINESS [None]
  - NAUSEA [None]
  - NERVOUS SYSTEM DISORDER [None]
